FAERS Safety Report 5851794-X (Version None)
Quarter: 2008Q3

REPORT INFORMATION
  Report Type: 
  Country: None (occurrence: None)
  Receive Date: 20080820
  Receipt Date: 20080811
  Transmission Date: 20090109
  Serious: Yes (Other)
  Sender: FDA-Public Use
  Company Number: US-JNJCH-2008021005

PATIENT
  Age: 25 Year
  Sex: Female

DRUGS (1)
  1. LISTERINE WHITENING PRE-BRUSH RINSE [Suspect]
     Indication: DENTAL CARE
     Dosage: TEXT:3 TEASPOONFULS 2X PER DAY
     Route: 048
     Dates: start: 20080808, end: 20080809

REACTIONS (3)
  - APPLICATION SITE BURN [None]
  - DRY MOUTH [None]
  - ORAL MUCOSAL EXFOLIATION [None]
